FAERS Safety Report 16520844 (Version 34)
Quarter: 2022Q4

REPORT INFORMATION
  Report Type: Report from Study
  Country: GB (occurrence: GB)
  Receive Date: 20190702
  Receipt Date: 20221216
  Transmission Date: 20230113
  Serious: Yes (Death, Hospitalization, Other)
  Sender: FDA-Public Use
  Company Number: GB-ROCHE-1836249

PATIENT
  Age: 33 Year
  Sex: Female

DRUGS (223)
  1. TRASTUZUMAB [Suspect]
     Active Substance: TRASTUZUMAB
     Indication: HER2 positive breast cancer
     Dosage: 280 MILLIGRAM, START 31-JAN-2018
     Route: 042
     Dates: end: 20180131
  2. TRASTUZUMAB [Suspect]
     Active Substance: TRASTUZUMAB
     Dosage: 567 MILLIGRAM, QD (LOADING DOSE)
     Route: 042
     Dates: start: 20160609, end: 20160609
  3. TRASTUZUMAB [Suspect]
     Active Substance: TRASTUZUMAB
     Dosage: 420 MILLIGRAM, Q3W (3 TIMES/WK)
     Route: 042
     Dates: start: 20160701, end: 20200727
  4. TRASTUZUMAB [Suspect]
     Active Substance: TRASTUZUMAB
     Dosage: 472.5 MILLIGRAM, Q3W, LOADING DOSE
     Route: 042
     Dates: start: 20170519, end: 20171228
  5. TRASTUZUMAB [Suspect]
     Active Substance: TRASTUZUMAB
     Dosage: 420 MILLIGRAM, Q3W (3 TIMES/WK)START07-SEP-2016
     Route: 042
     Dates: end: 20160926
  6. TRASTUZUMAB [Suspect]
     Active Substance: TRASTUZUMAB
     Dosage: 420 MILLIGRAM, Q3W (3 TIMES/WK)START 24-FEB-2017
     Route: 042
     Dates: end: 20170407
  7. TRASTUZUMAB [Suspect]
     Active Substance: TRASTUZUMAB
     Dosage: 451.5 MILLIGRAM, Q3W, START02-DEC-2016
     Route: 042
     Dates: start: 20161202, end: 20170203
  8. TRASTUZUMAB [Suspect]
     Active Substance: TRASTUZUMAB
     Dosage: 451.5 MILLIGRAM, Q3W (11-NOV-2016
     Route: 042
     Dates: end: 20170519
  9. TRASTUZUMAB [Suspect]
     Active Substance: TRASTUZUMAB
     Dosage: 451.5 MILLIGRAM, Q3W, START21-OCT-2016
     Route: 042
     Dates: start: 20161021, end: 20161111
  10. TRASTUZUMAB [Suspect]
     Active Substance: TRASTUZUMAB
     Dosage: 472.5 MILLIGRAM, Q3W (START12-JUN-2017
     Route: 042
     Dates: start: 20170612, end: 20171228
  11. TRASTUZUMAB [Suspect]
     Active Substance: TRASTUZUMAB
     Dosage: 451.5 MILLIGRAM, Q3W (3 TIMES/WK)START28-APR-2017
     Route: 042
     Dates: start: 20170428, end: 20170519
  12. TRASTUZUMAB [Suspect]
     Active Substance: TRASTUZUMAB
     Dosage: 441MG, Q3W (441MG, 3 TIMES/WK)START07-SEP-2016
     Route: 042
     Dates: end: 20160926
  13. TRASTUZUMAB [Suspect]
     Active Substance: TRASTUZUMAB
     Dosage: 430.5MG, Q3W (430.5MG, 3TIMES/WK)START 24-FEB-2017
     Route: 042
     Dates: start: 20170224, end: 20170407
  14. TRASTUZUMAB [Suspect]
     Active Substance: TRASTUZUMAB
     Dosage: 567 MILLIGRAM, Q3W (567 MILLIGRAM, Q3WK)
     Route: 042
     Dates: start: 20160609, end: 20160609
  15. TRASTUZUMAB [Suspect]
     Active Substance: TRASTUZUMAB
     Dosage: 441 MILLIGRAM (441 MILLIGRAM), START 02-DEC-2016
     Route: 042
     Dates: start: 20161202, end: 20170203
  16. TRASTUZUMAB [Suspect]
     Active Substance: TRASTUZUMAB
     Dosage: 420 MILLIGRAM, Q3W, START 02-DEC-2016
     Route: 042
     Dates: end: 20170203
  17. TRASTUZUMAB [Suspect]
     Active Substance: TRASTUZUMAB
     Dosage: 1354.5MG(451.5MG,3TIME/WK(CUM DOSE21680.062)
     Route: 042
     Dates: end: 20170519
  18. TRASTUZUMAB [Suspect]
     Active Substance: TRASTUZUMAB
     Dosage: 1354.5MG(451.5MG,3 TIMES/WK(CUM DOSE:54180MG)
     Route: 042
     Dates: end: 20170519
  19. TRASTUZUMAB [Suspect]
     Active Substance: TRASTUZUMAB
     Dosage: 1354.5MG,QW(451.5MG,3TIMES/WK (CUM DOSE:17608.5MG)
     Route: 042
     Dates: end: 20161111
  20. TRASTUZUMAB [Suspect]
     Active Substance: TRASTUZUMAB
     Dosage: 441 MILLIGRAM
     Route: 042
     Dates: start: 20160202, end: 20160203
  21. TRASTUZUMAB [Suspect]
     Active Substance: TRASTUZUMAB
     Dosage: 1354.5MG(451.5MG, 3 TIMES/WK(CUM DOSE:5743.562MG)
     Route: 042
     Dates: end: 20170203
  22. TRASTUZUMAB [Suspect]
     Active Substance: TRASTUZUMAB
     Dosage: 1260MG(42MG,3TIME/WK,DOSE:200CUMDOSE:3780.0MG)
     Route: 042
     Dates: start: 20160701
  23. TRASTUZUMAB [Suspect]
     Active Substance: TRASTUZUMAB
     Dosage: 1323MG(441MG, 3 DOSE PER 1W (CUM DOSE: 8883MG)
     Route: 042
     Dates: end: 20160926
  24. TRASTUZUMAB [Suspect]
     Active Substance: TRASTUZUMAB
     Dosage: 472.5MG, Q3W, (CUM DOSE7312.5MG),START 12-JUN-2017
     Route: 042
  25. TRASTUZUMAB [Suspect]
     Active Substance: TRASTUZUMAB
     Dosage: 280MG, Q3W,(CUM DOSE: 7440.5557MG)
     Route: 042
  26. TRASTUZUMAB [Suspect]
     Active Substance: TRASTUZUMAB
     Dosage: 441 MILLIGRAM(441 MG (DOSAGE FORM: 200)
     Route: 042
     Dates: start: 20160202, end: 20170203
  27. TRASTUZUMAB [Suspect]
     Active Substance: TRASTUZUMAB
     Dosage: 1417.5 MILLIGRAM(CUM DOSE: 65812.5MG)
     Route: 042
  28. TRASTUZUMAB [Suspect]
     Active Substance: TRASTUZUMAB
     Dosage: 1260MG(CUM DOSE:8460.0MG)
     Route: 042
     Dates: end: 20160926
  29. TRASTUZUMAB [Suspect]
     Active Substance: TRASTUZUMAB
     Dosage: 1290MG(CUM DOSE: 39997.68MG)
     Route: 042
  30. TRASTUZUMAB [Suspect]
     Active Substance: TRASTUZUMAB
     Dosage: 1260MG,QW(CUM DOSE: 39067.5 MG)
     Route: 042
     Dates: end: 20170407
  31. TRASTUZUMAB [Suspect]
     Active Substance: TRASTUZUMAB
     Dosage: (CUMULATIVE DOSE: 66965.0 MG), START 31-JAN-2018
     Route: 042
  32. TRASTUZUMAB [Suspect]
     Active Substance: TRASTUZUMAB
     Dosage: UNK
     Route: 048
  33. TRASTUZUMAB [Suspect]
     Active Substance: TRASTUZUMAB
     Dosage: UNK (START : 19-MAY-2017)
     Route: 048
     Dates: end: 20171228
  34. DOCETAXEL [Suspect]
     Active Substance: DOCETAXEL
     Indication: HER2 positive breast cancer
     Dosage: 130 MILLIGRAM, Q3W
     Route: 042
     Dates: start: 20160701, end: 20160727
  35. DOCETAXEL [Suspect]
     Active Substance: DOCETAXEL
     Dosage: 110 MILLIGRAM, Q3W, START 07-SEP-2016
     Route: 042
     Dates: start: 20160907, end: 20161021
  36. DOCETAXEL [Suspect]
     Active Substance: DOCETAXEL
     Dosage: 108 MILLIGRAM, Q3W, START 11-NOV-2016
     Route: 042
     Dates: start: 20161111, end: 20161111
  37. DOCETAXEL [Suspect]
     Active Substance: DOCETAXEL
     Dosage: 1 GRAM, START 16-JUN-2017
     Route: 042
  38. DOCETAXEL [Suspect]
     Active Substance: DOCETAXEL
     Dosage: 500 MILLIGRAM, BID, START 17-JUN-2017
     Route: 058
     Dates: start: 20170617
  39. DOCETAXEL [Suspect]
     Active Substance: DOCETAXEL
     Dosage: UNK UNK, Q3W, START 07-SEP-2016
     Route: 042
     Dates: end: 20161021
  40. DOCETAXEL [Suspect]
     Active Substance: DOCETAXEL
     Dosage: 130 MILLIGRAM, Q3W(130 MG, EVERY 3 WEEKS)
     Route: 042
     Dates: start: 20160701, end: 20160727
  41. DOCETAXEL [Suspect]
     Active Substance: DOCETAXEL
     Dosage: 130 MILLIGRAM, Q3W
     Route: 042
     Dates: start: 20160727
  42. DOCETAXEL [Suspect]
     Active Substance: DOCETAXEL
     Dosage: 1 NANOGRAM START 16-JUN-2017
     Route: 042
     Dates: start: 20170616
  43. DOCETAXEL [Suspect]
     Active Substance: DOCETAXEL
     Dosage: 110 MILLIGRAM, Q3W
     Route: 042
     Dates: start: 20160202, end: 20160203
  44. TAMOXIFEN [Suspect]
     Active Substance: TAMOXIFEN
     Indication: HER2 positive breast cancer
     Dosage: 20 UNK (START 23-JUN-2017)
     Route: 048
     Dates: start: 20170623, end: 20171228
  45. TAMOXIFEN [Suspect]
     Active Substance: TAMOXIFEN
     Dosage: UNK (START 13-FEB-2018)
     Route: 048
     Dates: start: 20180213, end: 20180605
  46. TAMOXIFEN [Suspect]
     Active Substance: TAMOXIFEN
     Dosage: 20 MILLIGRAM, QD (20 MILLIGRAM, QD) (START 13-FEB-2018)
     Route: 048
     Dates: end: 20180605
  47. TAMOXIFEN [Suspect]
     Active Substance: TAMOXIFEN
     Dosage: 20 MILLIGRAM, QD (20 MILLIGRAM, QD)
     Route: 048
     Dates: end: 20181228
  48. TAMOXIFEN [Suspect]
     Active Substance: TAMOXIFEN
     Dosage: UNK, START 23-JUN-2017
     Route: 065
     Dates: end: 20171228
  49. TAMOXIFEN [Suspect]
     Active Substance: TAMOXIFEN
     Dosage: UNK, START 13-FEB-2018
     Route: 048
     Dates: end: 20180605
  50. ANASTROZOLE [Suspect]
     Active Substance: ANASTROZOLE
     Indication: HER2 positive breast cancer
     Dosage: 1 MILLIGRAM, QD (START 06-JUN-2018)
     Route: 048
     Dates: end: 20190904
  51. ANASTROZOLE [Suspect]
     Active Substance: ANASTROZOLE
     Dosage: UNK
     Route: 048
  52. ANASTROZOLE [Suspect]
     Active Substance: ANASTROZOLE
     Dosage: 1 MILLIGRAM, QD(START 06-JUN-2018)
     Route: 048
  53. ANASTROZOLE [Suspect]
     Active Substance: ANASTROZOLE
     Dosage: UNK, START 06-JUN-2018
     Route: 065
     Dates: end: 20190904
  54. PERTUZUMAB [Suspect]
     Active Substance: PERTUZUMAB
     Indication: HER2 positive breast cancer
     Dosage: 840 MILLIGRAM, QD (LOADING DOSE)
     Route: 042
     Dates: start: 20160609, end: 20160609
  55. PERTUZUMAB [Suspect]
     Active Substance: PERTUZUMAB
     Indication: Breast cancer metastatic
     Dosage: 420 MILLIGRAM, Q3W
     Route: 042
     Dates: start: 20160701, end: 20171228
  56. PERTUZUMAB [Suspect]
     Active Substance: PERTUZUMAB
     Dosage: 840MG, Q3W (840 MG, Q3WK), LOADING DOSE
     Route: 042
     Dates: start: 20160609, end: 20160609
  57. PERTUZUMAB [Suspect]
     Active Substance: PERTUZUMAB
     Dosage: 840 MILLIGRAM, QD (840 MILLIGRAM, QD)
     Route: 042
     Dates: start: 20160609
  58. PERTUZUMAB [Suspect]
     Active Substance: PERTUZUMAB
     Dosage: 420 MILLIGRAM, Q3W
     Route: 042
     Dates: start: 20160701
  59. ADO-TRASTUZUMAB EMTANSINE [Suspect]
     Active Substance: ADO-TRASTUZUMAB EMTANSINE
     Indication: HER2 positive breast cancer
     Dosage: 280 MILLIGRAM (START 31-JAN-2018)
     Route: 042
     Dates: start: 20180131, end: 20180131
  60. ADO-TRASTUZUMAB EMTANSINE [Suspect]
     Active Substance: ADO-TRASTUZUMAB EMTANSINE
     Indication: Breast cancer metastatic
     Dosage: UNK
     Route: 065
  61. ADO-TRASTUZUMAB EMTANSINE [Suspect]
     Active Substance: ADO-TRASTUZUMAB EMTANSINE
     Dosage: 280 MILLIGRAM, Q3W (START 31-JAN-2018)
     Route: 042
  62. ADO-TRASTUZUMAB EMTANSINE [Suspect]
     Active Substance: ADO-TRASTUZUMAB EMTANSINE
     Dosage: 280 MILLIGRAM(280 MG), START 31-JAN-2018
     Route: 042
     Dates: end: 20180131
  63. ADO-TRASTUZUMAB EMTANSINE [Suspect]
     Active Substance: ADO-TRASTUZUMAB EMTANSINE
     Dosage: 280 MILLIGRAM, Q3W, (CUMULATIVE DOSE: 7440.55MG)
     Route: 042
     Dates: end: 20180131
  64. ENHERTU [Suspect]
     Active Substance: FAM-TRASTUZUMAB DERUXTECAN-NXKI
     Indication: HER2 positive breast cancer
     Dosage: 451.5 MILLIGRAM, Q3W, START 31-JAN-2018
     Route: 042
  65. ENHERTU [Suspect]
     Active Substance: FAM-TRASTUZUMAB DERUXTECAN-NXKI
     Dosage: 420 MILLIGRAM, Q3W
     Route: 042
     Dates: start: 20160701, end: 20160727
  66. ENHERTU [Suspect]
     Active Substance: FAM-TRASTUZUMAB DERUXTECAN-NXKI
     Dosage: 567 MILLIGRAM, QD, START 12-JUN-2017
     Route: 042
     Dates: end: 20171228
  67. ENHERTU [Suspect]
     Active Substance: FAM-TRASTUZUMAB DERUXTECAN-NXKI
     Dosage: 567 MILLIGRAM, QD, (LOADING DOSE)
     Route: 042
     Dates: start: 20160609, end: 20160609
  68. ENHERTU [Suspect]
     Active Substance: FAM-TRASTUZUMAB DERUXTECAN-NXKI
     Dosage: 451.5 MILLIGRAM, Q3W, START 11-NOV-2016
     Route: 042
     Dates: end: 20170519
  69. ENHERTU [Suspect]
     Active Substance: FAM-TRASTUZUMAB DERUXTECAN-NXKI
     Dosage: 473 MILLIGRAM, Q3W, START 28-APR-2017
     Route: 042
     Dates: end: 20170519
  70. ENHERTU [Suspect]
     Active Substance: FAM-TRASTUZUMAB DERUXTECAN-NXKI
     Dosage: 452 MILLIGRAM, Q3W, START 11-NOV-2016
     Route: 042
     Dates: end: 20170519
  71. ENHERTU [Suspect]
     Active Substance: FAM-TRASTUZUMAB DERUXTECAN-NXKI
     Dosage: 473 MILLIGRAM, Q3W, START 19-MAY-2017
     Route: 042
     Dates: end: 20171228
  72. ENHERTU [Suspect]
     Active Substance: FAM-TRASTUZUMAB DERUXTECAN-NXKI
     Dosage: 420 MILLIGRAM, Q3W, START 02-DEC-2016
     Route: 042
     Dates: end: 20170203
  73. ENHERTU [Suspect]
     Active Substance: FAM-TRASTUZUMAB DERUXTECAN-NXKI
     Dosage: 452 MILLIGRAM, Q3W, START 21-OCT-2016
     Route: 042
     Dates: end: 20161111
  74. ENHERTU [Suspect]
     Active Substance: FAM-TRASTUZUMAB DERUXTECAN-NXKI
     Dosage: 441 MILLIGRAM, Q3W, START 07-SEP-2016
     Route: 042
     Dates: end: 20160926
  75. ENHERTU [Suspect]
     Active Substance: FAM-TRASTUZUMAB DERUXTECAN-NXKI
     Dosage: 420 MILLIGRAM, Q3W, START 24-FEB-2017
     Route: 042
     Dates: end: 20170407
  76. ENHERTU [Suspect]
     Active Substance: FAM-TRASTUZUMAB DERUXTECAN-NXKI
     Dosage: 451.5 MILLIGRAM, Q3W (START 31-AUG-2018)
     Route: 042
  77. ENHERTU [Suspect]
     Active Substance: FAM-TRASTUZUMAB DERUXTECAN-NXKI
     Dosage: 415.5 MILLIGRAM, Q3W (11-NOV-2016)
     Route: 042
     Dates: end: 20170519
  78. ENHERTU [Suspect]
     Active Substance: FAM-TRASTUZUMAB DERUXTECAN-NXKI
     Dosage: 437MG(473 MG,ONCE EVERY 3 WK INJ,)
     Route: 042
  79. ENHERTU [Suspect]
     Active Substance: FAM-TRASTUZUMAB DERUXTECAN-NXKI
     Dosage: 420 MILLIGRAM, Q3W(420 MG, ONCE EVERY 3 WK)
     Route: 042
     Dates: start: 20160907, end: 20160926
  80. ENHERTU [Suspect]
     Active Substance: FAM-TRASTUZUMAB DERUXTECAN-NXKI
     Dosage: 451.5 MILLIGRAM, Q3W (START DATE: 28-APR-2017)
     Route: 042
     Dates: end: 20170519
  81. ENHERTU [Suspect]
     Active Substance: FAM-TRASTUZUMAB DERUXTECAN-NXKI
     Dosage: 472.5MG, Q3W (MOST RECENT DOSE ON 28/DEC/2017)
     Route: 042
  82. ENHERTU [Suspect]
     Active Substance: FAM-TRASTUZUMAB DERUXTECAN-NXKI
     Dosage: 451.5 MILLIGRAM, Q3W (START DATE: 02-DEC-2016)
     Route: 042
     Dates: end: 20170203
  83. ENHERTU [Suspect]
     Active Substance: FAM-TRASTUZUMAB DERUXTECAN-NXKI
     Dosage: 451.5 MILLIGRAM, Q3W (START DATE: 21-OCT-2016(
     Route: 042
     Dates: end: 20161111
  84. BENZYDAMINE HYDROCHLORIDE [Suspect]
     Active Substance: BENZYDAMINE HYDROCHLORIDE
     Indication: Product used for unknown indication
     Dosage: 130 MILLIGRAM
     Route: 065
     Dates: start: 20170727
  85. BENZYDAMINE HYDROCHLORIDE [Suspect]
     Active Substance: BENZYDAMINE HYDROCHLORIDE
     Dosage: UNK, QD (ONCE A DAY)
     Route: 065
     Dates: start: 20160722, end: 20160723
  86. FILGRASTIM [Concomitant]
     Active Substance: FILGRASTIM
     Indication: Product used for unknown indication
     Dosage: 300 MICROGRAM (START 31-JUL-2016)
     Route: 065
     Dates: start: 20160731, end: 20161112
  87. ENOXAPARIN [Concomitant]
     Active Substance: ENOXAPARIN
     Indication: Product used for unknown indication
     Dosage: 40 MILLIGRAM, QD (START DATE: 14-FEB-2018)
     Route: 058
     Dates: start: 20180214, end: 20180218
  88. ENOXAPARIN [Concomitant]
     Active Substance: ENOXAPARIN
     Dosage: 1200 MILLIGRAM, QD (START 12-FEB-2018)
     Route: 058
     Dates: start: 20180212, end: 20180212
  89. ENOXAPARIN [Concomitant]
     Active Substance: ENOXAPARIN
     Dosage: 40 MILLIGRAM, QD (START 16-JUN-2017)
     Route: 058
     Dates: start: 20170616, end: 20170623
  90. ENOXAPARIN [Concomitant]
     Active Substance: ENOXAPARIN
     Dosage: 40 MILLIGRAM, QD (START 14-FEB-2018)
     Route: 058
     Dates: end: 20180214
  91. ENOXAPARIN [Concomitant]
     Active Substance: ENOXAPARIN
     Dosage: 40 MILLIGRAM, QD (START 05-JAN-2018)
     Route: 058
     Dates: start: 20180105, end: 20180117
  92. ENOXAPARIN [Concomitant]
     Active Substance: ENOXAPARIN
     Dosage: 40 MILLIGRAM, QD (START 17-AUG-2018)
     Route: 058
     Dates: end: 20180914
  93. ENOXAPARIN [Concomitant]
     Active Substance: ENOXAPARIN
     Dosage: 120 MILLIGRAM, QD (START 12-FEB-2018)
     Route: 058
     Dates: end: 20180212
  94. ENOXAPARIN [Concomitant]
     Active Substance: ENOXAPARIN
     Dosage: 40 MILLIGRAM, QD (START 17-AUG-2016)
     Route: 058
     Dates: start: 20160817, end: 20160914
  95. ENOXAPARIN [Concomitant]
     Active Substance: ENOXAPARIN
     Dosage: UNK
     Route: 065
  96. ENOXAPARIN [Concomitant]
     Active Substance: ENOXAPARIN
     Dosage: 40 MILLIGRAM, QD, START 14-FEB-2018
     Route: 058
     Dates: end: 20180218
  97. ENOXAPARIN [Concomitant]
     Active Substance: ENOXAPARIN
     Dosage: UNK, START 14-FEB-2018
     Route: 058
     Dates: end: 20180218
  98. ENOXAPARIN [Concomitant]
     Active Substance: ENOXAPARIN
     Dosage: 40 MILLIGRAM, QD, START 12-FEB-2018
     Route: 058
     Dates: end: 20180212
  99. ENOXAPARIN [Concomitant]
     Active Substance: ENOXAPARIN
     Dosage: 120 MILLIGRAM, QD
     Route: 058
  100. ALBUTEROL [Concomitant]
     Active Substance: ALBUTEROL
     Dosage: 2.5 MILLIGRAM (START 16-JUN-2017)
     Route: 055
     Dates: start: 20170616, end: 20170618
  101. ALBUTEROL [Concomitant]
     Active Substance: ALBUTEROL
     Dosage: 2.5 MILLIGRAM (START 22-AUG-2016)
     Route: 055
     Dates: end: 20160908
  102. ALBUTEROL [Concomitant]
     Active Substance: ALBUTEROL
     Dosage: UNK (START 22-AUG-2016)
     Route: 055
     Dates: start: 20160822, end: 20160908
  103. ALBUTEROL [Concomitant]
     Active Substance: ALBUTEROL
     Dosage: UNK (START 22-AUG-2016)
     Route: 055
     Dates: end: 20160908
  104. ALBUTEROL [Concomitant]
     Active Substance: ALBUTEROL
     Dosage: 3 MILLIGRAM, START 22-AUG-2016
     Route: 065
     Dates: end: 20160908
  105. ALBUTEROL [Concomitant]
     Active Substance: ALBUTEROL
     Dosage: 3 MILLIGRAM, START 16-JUN-2017
     Route: 055
     Dates: end: 20170618
  106. MEROPENEM [Concomitant]
     Active Substance: MEROPENEM
     Indication: Product used for unknown indication
     Dosage: 1 GRAM (START 09-AUG-2016)
     Route: 042
     Dates: start: 20160809, end: 20160817
  107. CALCIUM CARBONATE\CHOLECALCIFEROL [Concomitant]
     Active Substance: CALCIUM CARBONATE\CHOLECALCIFEROL
     Indication: Product used for unknown indication
     Dosage: UNK UNK, QD (0.5 UNK, QD, START 21-JUN-2017)
     Route: 048
  108. CALCIUM CARBONATE\CHOLECALCIFEROL [Concomitant]
     Active Substance: CALCIUM CARBONATE\CHOLECALCIFEROL
     Dosage: UNK(PER 0.5 DAY (START 21-JUN-2017)
     Route: 048
     Dates: start: 20170621
  109. CALCIUM CARBONATE\CHOLECALCIFEROL [Concomitant]
     Active Substance: CALCIUM CARBONATE\CHOLECALCIFEROL
     Dosage: UNK(1, PER 0.5 DAY (START 21-JUN-2017)
     Route: 048
  110. CALCIUM CARBONATE\CHOLECALCIFEROL [Concomitant]
     Active Substance: CALCIUM CARBONATE\CHOLECALCIFEROL
     Dosage: UNK(2, PER 0.5 DAY (START 21-JUN-2017)
     Route: 048
  111. LEVETIRACETAM [Concomitant]
     Active Substance: LEVETIRACETAM
     Indication: Product used for unknown indication
     Dosage: 1 GRAM (START 16-JUN-2017)
     Route: 042
     Dates: start: 20170616, end: 20170616
  112. LEVETIRACETAM [Concomitant]
     Active Substance: LEVETIRACETAM
     Dosage: 500 MILLIGRAM, BID (START 17-JUN-2017)
     Route: 042
  113. LEVETIRACETAM [Concomitant]
     Active Substance: LEVETIRACETAM
     Dosage: 1000 MILLIGRAM, QD (START 17-JUN-2017)
     Route: 048
  114. LEVETIRACETAM [Concomitant]
     Active Substance: LEVETIRACETAM
     Dosage: 500 MILLIGRAM, BID (START 17-JUN-2017)
     Route: 058
  115. LEVETIRACETAM [Concomitant]
     Active Substance: LEVETIRACETAM
     Dosage: 1 GRAM, START 17-JUN-2017
     Route: 048
     Dates: start: 20170617
  116. LEVETIRACETAM [Concomitant]
     Active Substance: LEVETIRACETAM
     Dosage: UNK
     Route: 065
  117. LEVETIRACETAM [Concomitant]
     Active Substance: LEVETIRACETAM
     Dosage: 500 MILLIGRAM(500 MG PER 0.5 DAY)
     Route: 058
  118. RANITIDINE [Concomitant]
     Active Substance: RANITIDINE
     Indication: Product used for unknown indication
     Dosage: 50 MILLIGRAM (START 17-JUN-2017)
     Route: 048
     Dates: start: 20170617, end: 20170618
  119. RANITIDINE [Concomitant]
     Active Substance: RANITIDINE
     Dosage: 50 MILLIGRAM(50 MG (DOSE FORM: 245
     Route: 048
     Dates: end: 20170618
  120. COTRIMOXAZOLE [Concomitant]
     Active Substance: SULFAMETHOXAZOLE\TRIMETHOPRIM
     Indication: Product used for unknown indication
     Dosage: 483 MILLIGRAM (START 31-JAN-2018)
     Route: 048
     Dates: end: 20180131
  121. COTRIMOXAZOLE [Concomitant]
     Active Substance: SULFAMETHOXAZOLE\TRIMETHOPRIM
     Dosage: 483 MILLIGRAM (START 31-JAN-2018)
     Route: 048
     Dates: start: 20180131, end: 20180131
  122. COTRIMOXAZOLE [Concomitant]
     Active Substance: SULFAMETHOXAZOLE\TRIMETHOPRIM
     Dosage: 483 MILLIGRAM (START 31-JAN-2018)
     Route: 065
  123. COTRIMOXAZOLE [Concomitant]
     Active Substance: SULFAMETHOXAZOLE\TRIMETHOPRIM
     Dosage: 483 MILLIGRAM (START 31-JAN-2018)
     Route: 065
     Dates: end: 20180131
  124. METOCLOPRAMIDE [Concomitant]
     Active Substance: METOCLOPRAMIDE
     Indication: Product used for unknown indication
     Dosage: 10 MILLIGRAM
     Route: 048
     Dates: start: 20160610, end: 20161111
  125. METOCLOPRAMIDE [Concomitant]
     Active Substance: METOCLOPRAMIDE
     Dosage: 10 MILLIGRAM, START 31-JAN-2018
     Route: 048
     Dates: start: 20180131
  126. METOCLOPRAMIDE [Concomitant]
     Active Substance: METOCLOPRAMIDE
     Dosage: 10 MILLIGRAM
     Route: 048
     Dates: start: 20160110, end: 20161111
  127. METOCLOPRAMIDE [Concomitant]
     Active Substance: METOCLOPRAMIDE
     Dosage: 10 MILLIGRAM
     Route: 048
     Dates: start: 20180106, end: 20180106
  128. AMOXICILLIN [Concomitant]
     Active Substance: AMOXICILLIN
     Indication: Product used for unknown indication
     Dosage: UNK, QD (START DEC-2017)
     Route: 048
     Dates: start: 201712, end: 201712
  129. CHLORPHENIRAMINE MALEATE [Concomitant]
     Active Substance: CHLORPHENIRAMINE MALEATE
     Indication: Product used for unknown indication
     Dosage: 10 MILLIGRAM (START 07-SEP-2016)
     Route: 042
     Dates: start: 20160907, end: 20160907
  130. CHLORPHENIRAMINE MALEATE [Concomitant]
     Active Substance: CHLORPHENIRAMINE MALEATE
     Dosage: 10 MILLIGRAM (28-SEP-2016)
     Route: 042
     Dates: start: 20160928, end: 20170724
  131. HYDROCORTISONE [Concomitant]
     Active Substance: HYDROCORTISONE
     Indication: Product used for unknown indication
     Dosage: 100 MILLIGRAM (START 07-SEP-2016)
     Route: 042
     Dates: start: 20160907, end: 20160907
  132. HYDROCORTISONE [Concomitant]
     Active Substance: HYDROCORTISONE
     Dosage: 100 MILLIGRAM (START 28-SEP-2016)
     Route: 042
     Dates: start: 20160928
  133. HYDROCORTISONE [Concomitant]
     Active Substance: HYDROCORTISONE
     Dosage: 100 MILLIGRAM
     Route: 042
  134. HYDROCORTISONE [Concomitant]
     Active Substance: HYDROCORTISONE
     Dosage: 500 MILLIGRAM PER 0.5 DAY (START: 17-JUN-2017)
     Route: 042
  135. MORPHINE SULFATE [Concomitant]
     Active Substance: MORPHINE SULFATE
     Indication: Product used for unknown indication
     Dosage: 2.5 MILLIGRAM (START 28-AUG-2016)
     Route: 048
     Dates: start: 20160828
  136. MORPHINE SULFATE [Concomitant]
     Active Substance: MORPHINE SULFATE
     Dosage: UNK (START 28-AUG-2016)
     Route: 048
  137. MORPHINE SULFATE [Concomitant]
     Active Substance: MORPHINE SULFATE
     Dosage: 15 MILLIGRAM(15 MG, EVERY 12 HOUR/15 MG, BID), START 13-FEB-2018
     Route: 048
     Dates: start: 20180213, end: 20180217
  138. MORPHINE SULFATE [Concomitant]
     Active Substance: MORPHINE SULFATE
     Dosage: 2.5 MILLIGRAM(2.5 MG)START DATE: 28-AUG-2016)
     Route: 048
  139. SULFAMETHOXAZOLE\TRIMETHOPRIM [Concomitant]
     Active Substance: SULFAMETHOXAZOLE\TRIMETHOPRIM
     Indication: Product used for unknown indication
     Dosage: 2112 MILLIGRAM (START 11-AUG-2016)
     Route: 042
     Dates: end: 20160816
  140. CODEINE PHOSPHATE [Concomitant]
     Active Substance: CODEINE PHOSPHATE
     Dosage: 10 MILLILITER (START 19-JUN-2017)
     Route: 048
     Dates: start: 20170619, end: 20170619
  141. LEVOMEPROMAZINE [Concomitant]
     Active Substance: LEVOMEPROMAZINE
     Indication: Product used for unknown indication
     Dosage: 6.25 MILLIGRAM (START 17-JUN-2017)
     Route: 058
     Dates: start: 20170617, end: 20170617
  142. LEVOMEPROMAZINE [Concomitant]
     Active Substance: LEVOMEPROMAZINE
     Dosage: UNK (START 08-SEP-2017)
     Route: 065
     Dates: start: 20170908, end: 20170925
  143. LEVOMEPROMAZINE [Concomitant]
     Active Substance: LEVOMEPROMAZINE
     Dosage: 6 MILLIGRAM, QD
     Route: 058
  144. LEVOMEPROMAZINE [Concomitant]
     Active Substance: LEVOMEPROMAZINE
     Dosage: 6 MILLIGRAM, START 17-JUN-2017
     Route: 058
     Dates: end: 20170617
  145. ZOPICLONE [Concomitant]
     Active Substance: ZOPICLONE
     Dosage: 3.75 MILLIGRAM (START 18-JUN-2017)
     Route: 048
     Dates: start: 20170618, end: 20170619
  146. ZOPICLONE [Concomitant]
     Active Substance: ZOPICLONE
     Dosage: 4 MILLIGRAM, START 18-JUN-2017
     Route: 048
     Dates: end: 20170619
  147. SODIUM CHLORIDE [Concomitant]
     Active Substance: SODIUM CHLORIDE
     Indication: Product used for unknown indication
     Dosage: 5 MILLILITER, QW (EVERY 4 WEEK) (START 16-JUN-2017)
     Route: 055
     Dates: end: 20170623
  148. SODIUM CHLORIDE [Concomitant]
     Active Substance: SODIUM CHLORIDE
     Dosage: 58.75 MILLILITER (START 05-JAN-2018)
     Route: 042
     Dates: end: 20180105
  149. SODIUM CHLORIDE [Concomitant]
     Active Substance: SODIUM CHLORIDE
     Dosage: 58.75 MILLILITER (START 12-FEB-2018)
     Route: 042
     Dates: end: 20180214
  150. SODIUM CHLORIDE [Concomitant]
     Active Substance: SODIUM CHLORIDE
     Dosage: 58.75 MILLILITER (START 16-JUN-2017)
     Route: 042
     Dates: start: 20170616, end: 20170623
  151. SODIUM CHLORIDE [Concomitant]
     Active Substance: SODIUM CHLORIDE
     Dosage: 58.75 MILLILITER (START 16-JUN-2017)
     Route: 042
     Dates: end: 20170616
  152. SODIUM CHLORIDE [Concomitant]
     Active Substance: SODIUM CHLORIDE
     Dosage: UNK
     Route: 042
  153. SODIUM CHLORIDE [Concomitant]
     Active Substance: SODIUM CHLORIDE
     Dosage: UNK (START 12-FEB-2018)
     Route: 042
     Dates: end: 20180214
  154. HERBALS\SENNOSIDES [Concomitant]
     Active Substance: HERBALS\SENNOSIDES
     Indication: HER2 positive breast cancer
     Dosage: 15 MILLIGRAM, QD
     Route: 065
     Dates: start: 20160722
  155. HERBALS\SENNOSIDES [Concomitant]
     Active Substance: HERBALS\SENNOSIDES
     Dosage: 15 MILLIGRAM, QD
     Route: 065
     Dates: start: 20160722, end: 20161011
  156. CIPROFLOXACIN [Concomitant]
     Active Substance: CIPROFLOXACIN
     Indication: Product used for unknown indication
     Dosage: UNK (START 09-OCT-2016)
     Route: 065
     Dates: end: 20161009
  157. CLARITHROMYCIN [Concomitant]
     Active Substance: CLARITHROMYCIN
     Indication: Product used for unknown indication
     Dosage: 500 MILLIGRAM (START 14-FEB-2018)
     Route: 048
     Dates: end: 20180301
  158. ENOXAPARIN SODIUM [Concomitant]
     Active Substance: ENOXAPARIN SODIUM
     Indication: Product used for unknown indication
     Dosage: 110 MILLIGRAM, QD (25-AUG-2016)
     Route: 065
     Dates: end: 20160914
  159. ENOXAPARIN SODIUM [Concomitant]
     Active Substance: ENOXAPARIN SODIUM
     Dosage: 40 MILLIGRAM, QD (START DATE: 23-JUL-2016)
     Route: 065
     Dates: end: 20160723
  160. AMOXICILLIN\CLAVULANATE POTASSIUM [Concomitant]
     Active Substance: AMOXICILLIN\CLAVULANATE POTASSIUM
     Dosage: 1.2 GRAM, BID (START 14-FEB-2018)
     Route: 042
     Dates: end: 20180214
  161. AMOXICILLIN\CLAVULANATE POTASSIUM [Concomitant]
     Active Substance: AMOXICILLIN\CLAVULANATE POTASSIUM
     Dosage: 625 MILLIGRAM, TID (625 MILLIGRAM 3/DAY)
     Route: 065
     Dates: end: 20180301
  162. AMOXICILLIN\CLAVULANATE POTASSIUM [Concomitant]
     Active Substance: AMOXICILLIN\CLAVULANATE POTASSIUM
     Dosage: 1875 MILLIGRAM, QD (START 15-FEB-2018)
     Route: 065
     Dates: end: 20180301
  163. AMOXICILLIN\CLAVULANATE POTASSIUM [Concomitant]
     Active Substance: AMOXICILLIN\CLAVULANATE POTASSIUM
     Dosage: 2.4 GRAM, BID (1.2 GRAM, BID (START 14-FEB-2018)
     Route: 042
     Dates: end: 20180214
  164. AMOXICILLIN\CLAVULANATE POTASSIUM [Concomitant]
     Active Substance: AMOXICILLIN\CLAVULANATE POTASSIUM
     Dosage: 1875 MILLIGRAM(1875 MILLIGRAM, QD (START 14-FEB-2018))
     Route: 065
     Dates: end: 20180214
  165. AMOXICILLIN\CLAVULANATE POTASSIUM [Concomitant]
     Active Substance: AMOXICILLIN\CLAVULANATE POTASSIUM
     Dosage: 2.4 MILLIGRAM(2.4 MG QD [1.2 GRAM, BID (START 14-FEB-2018)]
     Route: 042
  166. AMOXICILLIN\CLAVULANATE POTASSIUM [Concomitant]
     Active Substance: AMOXICILLIN\CLAVULANATE POTASSIUM
     Dosage: 4.8 GRAM(1.2 GRAM, BID (START 14-FEB-2018)
     Route: 042
     Dates: end: 20180214
  167. AMOXICILLIN\CLAVULANATE POTASSIUM [Concomitant]
     Active Substance: AMOXICILLIN\CLAVULANATE POTASSIUM
     Dosage: 5625MG(625MG, TID (625 MILLIGRAM 3/DAY)
     Route: 065
     Dates: end: 20180301
  168. CYCLIZINE [Concomitant]
     Active Substance: CYCLIZINE
     Indication: Product used for unknown indication
     Dosage: 50 MILLIGRAM, TID (50 MILLIGRAM 3/DAY,
     Route: 048
  169. CYCLIZINE [Concomitant]
     Active Substance: CYCLIZINE
     Dosage: 150 MILLIGRAM, QD (START 02-SEP-2017)
     Route: 048
  170. CYCLIZINE [Concomitant]
     Active Substance: CYCLIZINE
     Dosage: 150MG, TID (50MG, TID (50MG3/DAY,
     Route: 048
  171. CYCLIZINE [Concomitant]
     Active Substance: CYCLIZINE
     Dosage: 450MG(50MG, TID (50MG3/DAY, START 02-SEP-2017)
     Route: 048
  172. DEXAMETHASONE [Concomitant]
     Active Substance: DEXAMETHASONE
     Dosage: 8 MILLIGRAM
     Route: 048
     Dates: start: 20160610, end: 20160611
  173. DEXAMETHASONE [Concomitant]
     Active Substance: DEXAMETHASONE
     Dosage: 1 DOSAGE FORM, QD, START 05-AUG-2016
     Route: 048
     Dates: end: 201609
  174. DEXAMETHASONE [Concomitant]
     Active Substance: DEXAMETHASONE
     Dosage: 4 MILLIGRAM, QD, START 10-JAN-2018
     Route: 048
  175. DEXAMETHASONE [Concomitant]
     Active Substance: DEXAMETHASONE
     Dosage: 8 MILLIGRAM, QD, START 03-AUG-2016
     Route: 042
     Dates: end: 20160805
  176. DEXAMETHASONE [Concomitant]
     Active Substance: DEXAMETHASONE
     Dosage: 2 MILLIGRAM, QD, START 02-SEP-2017
     Route: 048
     Dates: end: 20180110
  177. DEXAMETHASONE [Concomitant]
     Active Substance: DEXAMETHASONE
     Dosage: 4 MILLIGRAM, BID, START 16-JUN-2017
     Route: 048
     Dates: end: 20170902
  178. DEXAMETHASONE [Concomitant]
     Active Substance: DEXAMETHASONE
     Dosage: 8 MILLIGRAM, START 16-JUN-2017
     Route: 042
     Dates: end: 20170616
  179. DEXAMETHASONE [Concomitant]
     Active Substance: DEXAMETHASONE
     Dosage: 2 MILLIGRAM, QD, START 11-JAN-2018
     Route: 048
  180. DEXAMETHASONE [Concomitant]
     Active Substance: DEXAMETHASONE
     Dosage: 4 MILLIGRAM, BID
     Route: 048
     Dates: start: 20160722, end: 20160723
  181. DEXAMETHASONE [Concomitant]
     Active Substance: DEXAMETHASONE
     Dosage: 8 MILLIGRAM
     Route: 048
     Dates: start: 20160610, end: 20160610
  182. DEXAMETHASONE [Concomitant]
     Active Substance: DEXAMETHASONE
     Dosage: 2 MILLIGRAM, QD, START 11-JAN-2020
     Route: 048
  183. DEXAMETHASONE [Concomitant]
     Active Substance: DEXAMETHASONE
     Dosage: 40 MILLIGRAM, BID, START 22-JUL-2016
     Route: 048
     Dates: end: 20160723
  184. BENZYDAMINE [Concomitant]
     Active Substance: BENZYDAMINE
     Indication: Product used for unknown indication
     Dosage: UNK
     Route: 065
     Dates: start: 20160722, end: 20160723
  185. DOCUSATE [Concomitant]
     Active Substance: DOCUSATE
     Dosage: 20 MILLIGRAM, QD (20 MG, 1X/DAY )
     Route: 048
     Dates: start: 20160722, end: 20160724
  186. GENTAMICIN [Concomitant]
     Active Substance: GENTAMICIN
     Indication: Product used for unknown indication
     Dosage: 375MG, QD (375MG, QD, START 09-OCT-2016)
     Route: 042
     Dates: end: 20161009
  187. GENTAMICIN [Concomitant]
     Active Substance: GENTAMICIN
     Dosage: 800 MILLIGRAM, QD (START DATE: 12-FEB-2018)
     Route: 042
     Dates: end: 20180212
  188. GENTAMICIN [Concomitant]
     Active Substance: GENTAMICIN
     Dosage: 800 MILLIGRAM, BID(400 MG, BID,START12-FEB-2018)
     Route: 042
     Dates: end: 20180212
  189. GENTAMICIN [Concomitant]
     Active Substance: GENTAMICIN
     Dosage: 1600 MILLIGRAM(400 MILLIGRAM, BID, 12-FEB-2018 )
     Route: 042
     Dates: end: 20180212
  190. LANSOPRAZOLE [Concomitant]
     Active Substance: LANSOPRAZOLE
     Indication: Product used for unknown indication
     Dosage: 30 MILLIGRAM, QD
     Route: 048
     Dates: start: 20160722, end: 20160724
  191. LANSOPRAZOLE [Concomitant]
     Active Substance: LANSOPRAZOLE
     Dosage: 30 MILLIGRAM, QD, START 09-AUG-2016
     Route: 048
  192. LANSOPRAZOLE [Concomitant]
     Active Substance: LANSOPRAZOLE
     Dosage: 30 MILLIGRAM, QD, START 10-OCT-2016
     Route: 048
  193. LEVOFLOXACIN [Concomitant]
     Active Substance: LEVOFLOXACIN
     Indication: Product used for unknown indication
     Dosage: UNK (START 09-OCT-2016)
     Route: 065
     Dates: end: 20161010
  194. LEVOFLOXACIN [Concomitant]
     Active Substance: LEVOFLOXACIN
     Dosage: UNK (START 09-OCT-2016)
     Route: 065
     Dates: end: 20161017
  195. ONDANSETRON [Concomitant]
     Active Substance: ONDANSETRON
     Indication: Product used for unknown indication
     Dosage: 8 MILLIGRAM (8 MILLIGRAM 3/D, START 02-SEP-2017)
     Route: 048
  196. ONDANSETRON [Concomitant]
     Active Substance: ONDANSETRON
     Dosage: 8 MILLIGRAM (8 MILLIGRAM 3/D, START 16-JUN-2017)
     Route: 048
     Dates: end: 20170626
  197. ONDANSETRON [Concomitant]
     Active Substance: ONDANSETRON
     Dosage: 24 MILLIGRAM, TID (8 MG, TID)
     Route: 048
     Dates: start: 20160616, end: 20160626
  198. ONDANSETRON [Concomitant]
     Active Substance: ONDANSETRON
     Dosage: 72 MILLIGRAM(8 MG, TID), START 16-JUN-2017
     Route: 048
     Dates: end: 20170626
  199. ONDANSETRON [Concomitant]
     Active Substance: ONDANSETRON
     Dosage: 24 MILLIGRAM(24 MG, QD (8 MG, TID)START16-JUN-2017  )
     Route: 048
     Dates: end: 20170626
  200. OSELTAMIVIR [Concomitant]
     Active Substance: OSELTAMIVIR
     Indication: Product used for unknown indication
     Dosage: 15 MILLIGRAM, BID (START 13-FEB-2018)
     Route: 048
     Dates: end: 20180218
  201. OSELTAMIVIR [Concomitant]
     Active Substance: OSELTAMIVIR
     Dosage: 15 MILLIGRAM, BID (START 13-FEB-2018)
     Route: 048
     Dates: end: 20180217
  202. OSELTAMIVIR [Concomitant]
     Active Substance: OSELTAMIVIR
     Dosage: 30 MILLIGRAM, BID, 15 MG, BID (START 13-FEB-2018)
     Route: 048
     Dates: end: 20180217
  203. OSELTAMIVIR [Concomitant]
     Active Substance: OSELTAMIVIR
     Dosage: 60 MILLIGRAM(15 MG, BID), START 13-FEB-2018
     Route: 065
     Dates: end: 20180217
  204. ACETAMINOPHEN [Concomitant]
     Active Substance: ACETAMINOPHEN
     Indication: Product used for unknown indication
     Dosage: 1 GRAM, QD
     Route: 048
     Dates: start: 20160722, end: 20160724
  205. ACETAMINOPHEN [Concomitant]
     Active Substance: ACETAMINOPHEN
     Dosage: 1 GRAM, START 03-SEP-2017
     Route: 048
  206. ACETAMINOPHEN [Concomitant]
     Active Substance: ACETAMINOPHEN
     Dosage: 5 GRAM, START 03-AUG-2016
     Route: 048
  207. ACETAMINOPHEN [Concomitant]
     Active Substance: ACETAMINOPHEN
     Dosage: 1 MILLIGRAM, START 23-JUL-2016
     Route: 048
     Dates: end: 20160724
  208. ACETAMINOPHEN [Concomitant]
     Active Substance: ACETAMINOPHEN
     Dosage: 5 GRAM (03-AUG-2016)
     Route: 048
  209. ACETAMINOPHEN [Concomitant]
     Active Substance: ACETAMINOPHEN
     Dosage: UNK
     Route: 065
  210. RAMIPRIL [Concomitant]
     Active Substance: RAMIPRIL
     Indication: Product used for unknown indication
     Dosage: 2.3 MILLIGRAM, QD
     Route: 048
     Dates: start: 20160722
  211. RAMIPRIL [Concomitant]
     Active Substance: RAMIPRIL
     Dosage: 2.3 MILLIGRAM
     Route: 065
  212. PIPERACILLIN SODIUM\TAZOBACTAM SODIUM [Concomitant]
     Active Substance: PIPERACILLIN SODIUM\TAZOBACTAM SODIUM
     Dosage: 4.5 MILLIGRAM (4.5 MILLIGRAM 3/D) (START 12-FEB-2018)
     Route: 065
     Dates: end: 20180214
  213. PIPERACILLIN SODIUM\TAZOBACTAM SODIUM [Concomitant]
     Active Substance: PIPERACILLIN SODIUM\TAZOBACTAM SODIUM
     Dosage: 13.5 GRAM(13.5 G), START 12-FEB-2018
     Route: 048
     Dates: end: 20180214
  214. VANCOMYCIN [Concomitant]
     Active Substance: VANCOMYCIN
     Indication: Product used for unknown indication
     Dosage: UNK (START 09-OCT-2016)
     Route: 048
     Dates: end: 20161009
  215. VANCOMYCIN [Concomitant]
     Active Substance: VANCOMYCIN
     Dosage: UNK, START 09-OCT-2018
     Route: 048
     Dates: end: 20181009
  216. TRIMETHOPRIM [Concomitant]
     Active Substance: TRIMETHOPRIM
     Dosage: 50 MILLIGRAM, TID (START 02-SEP-2017)
     Route: 065
  217. TRIMETHOPRIM [Concomitant]
     Active Substance: TRIMETHOPRIM
     Dosage: 2112 MILLIGRAM, START 11-AUG-2016
     Route: 042
     Dates: end: 20160816
  218. CODEINE [Concomitant]
     Active Substance: CODEINE
     Indication: Product used for unknown indication
     Dosage: UNK
     Route: 065
  219. CODEINE [Concomitant]
     Active Substance: CODEINE
     Dosage: 10 MILLILITER, START 19-JUN-2017
     Route: 048
     Dates: end: 20170619
  220. PIPERACILLIN SODIUM [Concomitant]
     Active Substance: PIPERACILLIN SODIUM
     Indication: Product used for unknown indication
     Dosage: 13.5 MILLIGRAM, QD (4.5 MG TID), START 12-FEB-2018
     Route: 065
     Dates: start: 20180212, end: 20180214
  221. ZOPICLONE [Concomitant]
     Active Substance: ZOPICLONE
     Indication: Product used for unknown indication
     Dosage: 3.75 MILLIGRAM, START 18-JUN-2017
     Route: 048
     Dates: end: 20170619
  222. ZOPICLONE [Concomitant]
     Active Substance: ZOPICLONE
     Dosage: 4 MILLIGRAM, START 18-JUN-2017
     Route: 048
     Dates: end: 20170619
  223. METOCLOPRAMIDE [Concomitant]
     Active Substance: METOCLOPRAMIDE
     Indication: Product used for unknown indication
     Dosage: 10 MILLIGRAM (START DATE 06-JAN-2018)
     Route: 042
     Dates: end: 20180106

REACTIONS (16)
  - Disease progression [Fatal]
  - Off label use [Fatal]
  - Back pain [Fatal]
  - Hyponatraemia [Fatal]
  - Seizure [Fatal]
  - Chest pain [Fatal]
  - Dyspnoea [Fatal]
  - Nausea [Fatal]
  - Lower respiratory tract infection [Fatal]
  - Vomiting [Fatal]
  - Pneumonia [Fatal]
  - Diarrhoea [Fatal]
  - Excessive eye blinking [Fatal]
  - Pain in jaw [Fatal]
  - Ejection fraction decreased [Fatal]
  - Condition aggravated [Fatal]

NARRATIVE: CASE EVENT DATE: 20160722
